FAERS Safety Report 4789974-7 (Version None)
Quarter: 2005Q3

REPORT INFORMATION
  Report Type: 
  Country: None (occurrence: None)
  Receive Date: 20050914
  Receipt Date: 20040927
  Transmission Date: 20060218
  Serious: Yes (Death)
  Sender: FDA-Public Use
  Company Number: 163-20785-04090685

PATIENT
  Age: 70 Year
  Sex: Male

DRUGS (1)
  1. THALOMID [Suspect]
     Indication: MYELODYSPLASTIC SYNDROME
     Dosage: 100 MG, QHS, ORAL
     Route: 048
     Dates: start: 20040506, end: 20040823

REACTIONS (4)
  - ANAEMIA [None]
  - DEATH [None]
  - DISEASE PROGRESSION [None]
  - FATIGUE [None]
